FAERS Safety Report 10878482 (Version 1)
Quarter: 2015Q1

REPORT INFORMATION
  Report Type: Spontaneous
  Country: US (occurrence: None)
  Receive Date: 20150224
  Receipt Date: 20150224
  Transmission Date: 20150721
  Serious: Yes (Disabling, Other)
  Sender: FDA-Public Use
  Company Number: None

PATIENT
  Age: 59 Year
  Sex: Female
  Weight: 91.17 kg

DRUGS (4)
  1. ATORVASTATIN [Suspect]
     Active Substance: ATORVASTATIN
  2. GLYBURIDE. [Suspect]
     Active Substance: GLYBURIDE
  3. PROAIR HFA [Concomitant]
     Active Substance: ALBUTEROL SULFATE
  4. LISINOPRIL. [Concomitant]
     Active Substance: LISINOPRIL

REACTIONS (8)
  - Myalgia [None]
  - Drug effect delayed [None]
  - Asthenia [None]
  - Vision blurred [None]
  - Blood glucose increased [None]
  - Product expiration date issue [None]
  - Chest pain [None]
  - Activities of daily living impaired [None]

NARRATIVE: CASE EVENT DATE: 20150203
